FAERS Safety Report 8266907-2 (Version None)
Quarter: 2012Q2

REPORT INFORMATION
  Report Type: 
  Country: None (occurrence: None)
  Receive Date: 20120404
  Receipt Date: 20120404
  Transmission Date: 20120825
  Serious: Yes (Hospitalization)
  Sender: FDA-Public Use
  Company Number: None

PATIENT
  Age: 82 Year
  Sex: Male

DRUGS (1)
  1. DABIGATRAN [Suspect]
     Indication: ATRIAL FIBRILLATION
     Dosage: 150 MG BID PO
     Route: 048
     Dates: start: 20110908, end: 20120104

REACTIONS (6)
  - HAEMORRHAGE [None]
  - RECTAL HAEMORRHAGE [None]
  - GASTRIC HAEMORRHAGE [None]
  - ARTERIOVENOUS MALFORMATION [None]
  - FATIGUE [None]
  - HAEMOGLOBIN DECREASED [None]
